FAERS Safety Report 22191039 (Version 3)
Quarter: 2023Q2

REPORT INFORMATION
  Report Type: Spontaneous
  Country: NL (occurrence: NL)
  Receive Date: 20230410
  Receipt Date: 20230508
  Transmission Date: 20230721
  Serious: Yes (Other)
  Sender: FDA-Public Use
  Company Number: None

PATIENT
  Age: 6 Year
  Sex: Female

DRUGS (6)
  1. PREDNISOLONE [Suspect]
     Active Substance: PREDNISOLONE
     Indication: Pulmonary haemosiderosis
     Dosage: UNK
     Route: 048
  2. PREDNISOLONE [Suspect]
     Active Substance: PREDNISOLONE
     Dosage: UNK; 1-2 TIMES/YEAR
     Route: 065
  3. MYCOPHENOLATE MOFETIL [Suspect]
     Active Substance: MYCOPHENOLATE MOFETIL
     Indication: Pulmonary haemosiderosis
     Dosage: UNK
     Route: 065
  4. METHYLPREDNISOLONE [Suspect]
     Active Substance: METHYLPREDNISOLONE
     Indication: Pulmonary haemosiderosis
     Dosage: UNK, PULSE THERAPY
     Route: 065
  5. HYDROXYCHLOROQUINE [Suspect]
     Active Substance: HYDROXYCHLOROQUINE
     Indication: Pulmonary haemosiderosis
     Dosage: UNK
     Route: 065
  6. IRON [Concomitant]
     Active Substance: IRON
     Indication: Iron deficiency
     Dosage: UNK
     Route: 065

REACTIONS (8)
  - Behaviour disorder [Unknown]
  - Weight increased [Unknown]
  - Steroid dependence [Unknown]
  - Disease progression [Unknown]
  - Drug ineffective [Unknown]
  - Toxicity to various agents [Unknown]
  - Treatment noncompliance [Unknown]
  - Off label use [Unknown]
